FAERS Safety Report 16732272 (Version 1)
Quarter: 2019Q3

REPORT INFORMATION
  Report Type: Report from Study
  Country: US (occurrence: US)
  Receive Date: 20190822
  Receipt Date: 20190822
  Transmission Date: 20191005
  Serious: Yes (Other)
  Sender: FDA-Public Use
  Company Number: US-JAZZ-2016-US-024327

PATIENT

DRUGS (1)
  1. XYREM [Suspect]
     Active Substance: SODIUM OXYBATE
     Indication: NARCOLEPSY
     Route: 048

REACTIONS (17)
  - Sleep apnoea syndrome [Unknown]
  - Hypertension [Unknown]
  - Unevaluable event [Unknown]
  - Mental disorder [Unknown]
  - Blood cholesterol increased [Unknown]
  - Vitamin D decreased [Unknown]
  - Panic attack [Unknown]
  - Cardiac disorder [Unknown]
  - Obesity [Unknown]
  - Anxiety [Unknown]
  - Diabetes mellitus [Unknown]
  - Blood magnesium decreased [Unknown]
  - Libido increased [Unknown]
  - Labyrinthine fistula [Unknown]
  - Depression [Unknown]
  - Muscle disorder [Unknown]
  - Hunger [Unknown]
